FAERS Safety Report 11188607 (Version 1)
Quarter: 2015Q2

REPORT INFORMATION
  Report Type: Spontaneous
  Country: GB (occurrence: GB)
  Receive Date: 20150615
  Receipt Date: 20150615
  Transmission Date: 20150821
  Serious: Yes (Hospitalization)
  Sender: FDA-Public Use
  Company Number: GB-TEVA-569178ACC

PATIENT
  Age: 9 Month
  Sex: Male
  Weight: 9.6 kg

DRUGS (3)
  1. GAVISCON INFANT [Concomitant]
  2. CIPROFLOXACIN. [Suspect]
     Active Substance: CIPROFLOXACIN
     Dosage: 350 MILLIGRAM DAILY;
     Route: 048
     Dates: start: 20150521
  3. MELATONIN [Concomitant]
     Active Substance: MELATONIN

REACTIONS (1)
  - Device occlusion [Recovered/Resolved]

NARRATIVE: CASE EVENT DATE: 20150527
